FAERS Safety Report 25415434 (Version 2)
Quarter: 2025Q3

REPORT INFORMATION
  Report Type: Spontaneous
  Country: US (occurrence: US)
  Receive Date: 20250610
  Receipt Date: 20250809
  Transmission Date: 20251021
  Serious: Yes (Hospitalization)
  Sender: ALEXION PHARMACEUTICALS
  Company Number: US-AstraZeneca-CH-00883705A

PATIENT
  Sex: Female
  Weight: 89 kg

DRUGS (1)
  1. FARXIGA [Suspect]
     Active Substance: DAPAGLIFLOZIN PROPANEDIOL
     Indication: Cardiac disorder

REACTIONS (4)
  - Cardiac disorder [Recovering/Resolving]
  - Intentional dose omission [Unknown]
  - Renal impairment [Recovering/Resolving]
  - Pollakiuria [Recovering/Resolving]
